FAERS Safety Report 15637392 (Version 1)
Quarter: 2018Q4

REPORT INFORMATION
  Report Type: Spontaneous
  Country: US (occurrence: US)
  Receive Date: 20181120
  Receipt Date: 20181120
  Transmission Date: 20190205
  Serious: No
  Sender: FDA-Public Use
  Company Number: US-ENDO PHARMACEUTICALS INC-2017-007092

PATIENT
  Sex: Female

DRUGS (3)
  1. ASPIRIN                            /00002701/ [Concomitant]
     Active Substance: ASPIRIN
     Indication: PRODUCT USED FOR UNKNOWN INDICATION
  2. ZOLOFT [Concomitant]
     Active Substance: SERTRALINE HYDROCHLORIDE
     Indication: PRODUCT USED FOR UNKNOWN INDICATION
  3. ALPRAZOLAM TABLETS 1 MG [Suspect]
     Active Substance: ALPRAZOLAM
     Indication: PRODUCT USED FOR UNKNOWN INDICATION
     Dosage: 0.5 MG, OD, IN MORNING
     Route: 065

REACTIONS (7)
  - Incorrect dose administered [Unknown]
  - Product physical consistency issue [Unknown]
  - Tremor [Unknown]
  - Unevaluable event [Unknown]
  - Drug ineffective [Unknown]
  - Wrong technique in product usage process [Unknown]
  - Poor quality sleep [Unknown]
